FAERS Safety Report 19855971 (Version 1)
Quarter: 2021Q3

REPORT INFORMATION
  Report Type: Spontaneous
  Country: DE (occurrence: DE)
  Receive Date: 20210920
  Receipt Date: 20210920
  Transmission Date: 20211014
  Serious: Yes (Hospitalization)
  Sender: FDA-Public Use
  Company Number: DE-MYLANLABS-2021M1062363

PATIENT
  Age: 82 Year
  Sex: Female

DRUGS (7)
  1. FUROSEMIDE. [Suspect]
     Active Substance: FUROSEMIDE
     Dosage: 5 MILLIGRAM
  2. MODERNA COVID?19 VACCINE [Concomitant]
     Active Substance: CX-024414
     Dosage: RECEIVED ON 03 APR 2021
  3. MODERNA COVID?19 VACCINE [Concomitant]
     Active Substance: CX-024414
     Dosage: RECEIVED ON 06 MAR 2021
  4. DIGIMERCK [Suspect]
     Active Substance: DIGITOXIN
     Dosage: 0.07 MILLIGRAM, DOSE INCREASED
     Route: 065
     Dates: start: 202102, end: 2021
  5. FUROSEMIDE. [Suspect]
     Active Substance: FUROSEMIDE
     Indication: PRODUCT USED FOR UNKNOWN INDICATION
     Dosage: 10 MILLIGRAM
  6. MODERNA COVID?19 VACCINE [Concomitant]
     Active Substance: CX-024414
     Indication: COVID-19 IMMUNISATION
     Dosage: RECEIVED ON 15 JAN 2021
  7. DIGIMERCK [Suspect]
     Active Substance: DIGITOXIN
     Indication: ATRIAL FIBRILLATION
     Dosage: 0.05 MILLIGRAM
     Route: 065
     Dates: start: 20201217, end: 202102

REACTIONS (13)
  - Electrolyte depletion [Not Recovered/Not Resolved]
  - Dyspnoea [Unknown]
  - Pallor [Unknown]
  - Atrial fibrillation [Unknown]
  - Muscle spasms [Not Recovered/Not Resolved]
  - Peripheral coldness [Recovered/Resolved]
  - Product availability issue [Unknown]
  - Feeling cold [Unknown]
  - Disturbance in attention [Unknown]
  - Hyperhidrosis [Unknown]
  - Myalgia [Unknown]
  - Weight decreased [Unknown]
  - Incorrect dose administered [Unknown]

NARRATIVE: CASE EVENT DATE: 2021
